FAERS Safety Report 6391127-6 (Version None)
Quarter: 2009Q4

REPORT INFORMATION
  Report Type: 
  Country: None (occurrence: None)
  Receive Date: 20091006
  Receipt Date: 20091006
  Transmission Date: 20100525
  Serious: Yes (Other)
  Sender: FDA-Public Use
  Company Number: None

PATIENT
  Age: 79 Year
  Sex: Male
  Weight: 79 kg

DRUGS (2)
  1. LOVENOX [Suspect]
     Indication: THROMBOSIS PROPHYLAXIS
     Dosage: 30 MG ONCE SQ   LESS THAN 24 HOURS
     Route: 058
     Dates: start: 20090917, end: 20090917
  2. LOVENOX [Suspect]
     Indication: PULMONARY EMBOLISM
     Dosage: 100 MG ONCE SQ
     Route: 058

REACTIONS (2)
  - ANAEMIA [None]
  - HEPARIN-INDUCED THROMBOCYTOPENIA [None]
